FAERS Safety Report 4286085-4 (Version None)
Quarter: 2004Q1

REPORT INFORMATION
  Report Type: 
  Country: None (occurrence: None)
  Receive Date: 20040114
  Receipt Date: 20030305
  Transmission Date: 20041129
  Serious: No
  Sender: FDA-Public Use
  Company Number: 333307

PATIENT
  Age: 46 Year
  Sex: Female

DRUGS (2)
  1. ROCEPHIN [Suspect]
     Indication: OTITIS MEDIA
  2. VANCOMYCIN [Concomitant]

REACTIONS (1)
  - THROMBOCYTOPENIA [None]
